FAERS Safety Report 6385202-X (Version None)
Quarter: 2009Q4

REPORT INFORMATION
  Report Type: 
  Country: None (occurrence: None)
  Receive Date: 20091002
  Receipt Date: 20090529
  Transmission Date: 20100525
  Serious: No
  Sender: FDA-Public Use
  Company Number: US-ASTRAZENECA-2007UW18434

PATIENT
  Age: 72 Year
  Sex: Female
  Weight: 83.9 kg

DRUGS (7)
  1. ARIMIDEX [Suspect]
     Indication: BREAST CANCER FEMALE
     Route: 048
     Dates: start: 20070501
  2. LOTREL [Concomitant]
     Indication: HYPERTENSION
  3. ASPIRIN [Concomitant]
  4. XALATAN [Concomitant]
     Indication: GLAUCOMA
  5. VITAMINS [Concomitant]
  6. CELEBREX [Concomitant]
  7. TYLENOL (CAPLET) [Concomitant]
     Indication: PAIN

REACTIONS (13)
  - ARTHRALGIA [None]
  - BLOOD DISORDER [None]
  - BLOOD TRIGLYCERIDES INCREASED [None]
  - DIZZINESS [None]
  - DYSPNOEA [None]
  - JOINT SWELLING [None]
  - LYMPHOEDEMA [None]
  - OEDEMA PERIPHERAL [None]
  - PAIN [None]
  - POSTNASAL DRIP [None]
  - REFLUX OESOPHAGITIS [None]
  - WEIGHT DECREASED [None]
  - WEIGHT INCREASED [None]
